FAERS Safety Report 8485133-5 (Version None)
Quarter: 2012Q2

REPORT INFORMATION
  Report Type: 
  Country: None (occurrence: None)
  Receive Date: 20120625
  Receipt Date: 20120619
  Transmission Date: 20120825
  Serious: Yes (Other)
  Sender: FDA-Public Use
  Company Number: A0981637A

PATIENT
  Sex: Male

DRUGS (1)
  1. UREA PEROXIDE [Suspect]
     Indication: PRODUCT USED FOR UNKNOWN INDICATION
     Dosage: SINGLE DOSE
     Dates: start: 20120616, end: 20120616

REACTIONS (1)
  - DEAFNESS BILATERAL [None]
